FAERS Safety Report 9167503 (Version 3)
Quarter: 2014Q4

REPORT INFORMATION
  Report Type: Spontaneous
  Country: US (occurrence: US)
  Receive Date: 20130318
  Receipt Date: 20141218
  Transmission Date: 20150529
  Serious: Yes (Hospitalization)
  Sender: FDA-Public Use
  Company Number: US-BAYER-2013-031384

PATIENT
  Age: 40 Year
  Sex: Female
  Weight: 81.63 kg

DRUGS (25)
  1. BACTRIM [Concomitant]
     Active Substance: SULFAMETHOXAZOLE\TRIMETHOPRIM
     Route: 048
  2. SUDAFED [PSEUDOEPHEDRINE HYDROCHLORIDE] [Concomitant]
     Indication: TENSION HEADACHE
  3. QVAR [Concomitant]
     Active Substance: BECLOMETHASONE DIPROPIONATE
     Indication: BRONCHITIS
     Dosage: 80 MCG
     Route: 045
     Dates: start: 201201, end: 201209
  4. FLONASE [Concomitant]
     Active Substance: FLUTICASONE PROPIONATE
     Dosage: 50 MCG
     Route: 045
  5. SUDAFED [PSEUDOEPHEDRINE HYDROCHLORIDE] [Concomitant]
     Indication: SWELLING FACE
  6. OCELLA [Suspect]
     Active Substance: DROSPIRENONE\ETHINYL ESTRADIOL
     Indication: CONTRACEPTION
     Dosage: UNK
     Route: 048
     Dates: end: 20120924
  7. LORAZEPAM. [Concomitant]
     Active Substance: LORAZEPAM
     Dosage: UNK UNK, PRN
     Route: 048
  8. NORCO [Concomitant]
     Active Substance: ACETAMINOPHEN\HYDROCODONE BITARTRATE
     Indication: PAIN
     Dosage: 1-2 TABLETS Q 6 HRS AS NEEDED
     Route: 048
  9. DETROL LA [Concomitant]
     Active Substance: TOLTERODINE TARTRATE
     Indication: INCONTINENCE
     Dosage: 4 MG, DAY
     Route: 048
     Dates: start: 201201
  10. ZITHROMAX [Concomitant]
     Active Substance: AZITHROMYCIN DIHYDRATE
     Route: 048
  11. ROBAXIN [MACROGOL,METHOCARBAMOL] [Concomitant]
     Route: 048
  12. CELEXA [Concomitant]
     Active Substance: CITALOPRAM HYDROBROMIDE
     Indication: ANXIETY
     Dosage: 10 MG, DAILY
     Route: 048
     Dates: start: 201201
  13. YASMIN [Suspect]
     Active Substance: DROSPIRENONE\ETHINYL ESTRADIOL
     Indication: MIGRAINE
     Dosage: UNK
     Route: 048
     Dates: start: 200601, end: 20120924
  14. OCELLA [Suspect]
     Active Substance: DROSPIRENONE\ETHINYL ESTRADIOL
     Indication: PREMENSTRUAL SYNDROME
  15. DELTASONE [Concomitant]
     Active Substance: PREDNISONE
     Route: 048
  16. TORADOL [Concomitant]
     Active Substance: KETOROLAC TROMETHAMINE
     Indication: TENSION HEADACHE
  17. IBUPROFEN [IBUPROFEN] [Concomitant]
     Active Substance: IBUPROFEN
  18. MORPHINE [Concomitant]
     Active Substance: MORPHINE
     Indication: NECK PAIN
  19. VALIUM [DIAZEPAM] [Concomitant]
  20. DILAUDID [Concomitant]
     Active Substance: HYDROMORPHONE HYDROCHLORIDE
     Route: 030
  21. MOTRIN [Concomitant]
     Active Substance: IBUPROFEN
     Dosage: 1 DF, Q 8 HRS AS NEEDED
     Route: 048
  22. ALBUTEROL. [Concomitant]
     Active Substance: ALBUTEROL
     Route: 045
  23. ZOFRAN [Concomitant]
     Active Substance: ONDANSETRON HYDROCHLORIDE
     Route: 048
  24. SEPTRA DS [Concomitant]
     Active Substance: SULFAMETHOXAZOLE\TRIMETHOPRIM
     Route: 048
  25. ATIVAN [Concomitant]
     Active Substance: LORAZEPAM
     Indication: TENSION HEADACHE

REACTIONS (6)
  - General physical health deterioration [None]
  - Intracranial venous sinus thrombosis [None]
  - Headache [None]
  - Jugular vein thrombosis [None]
  - Deep vein thrombosis [None]
  - Injury [None]

NARRATIVE: CASE EVENT DATE: 20120921
